FAERS Safety Report 24117924 (Version 2)
Quarter: 2024Q4

REPORT INFORMATION
  Report Type: Report from Study
  Country: CA (occurrence: CA)
  Receive Date: 20240722
  Receipt Date: 20241015
  Transmission Date: 20250114
  Serious: Yes (Other)
  Sender: REGENERON
  Company Number: CA-BAYER-2024A103516

PATIENT
  Sex: Male

DRUGS (1)
  1. EYLEA [Suspect]
     Active Substance: AFLIBERCEPT
     Indication: Diabetic retinal oedema
     Dosage: LEFT EYE, 40 MG/ML
     Dates: start: 20240617

REACTIONS (3)
  - Retinal degeneration [Unknown]
  - Visual acuity reduced [Unknown]
  - Pupillary reflex impaired [Unknown]
